FAERS Safety Report 19005089 (Version 1)
Quarter: 2021Q1

REPORT INFORMATION
  Report Type: Spontaneous
  Country: US (occurrence: US)
  Receive Date: 20210312
  Receipt Date: 20210312
  Transmission Date: 20210420
  Serious: No
  Sender: FDA-Public Use
  Company Number: US-009507513-2103USA000641

PATIENT
  Age: 60 Year
  Sex: Male

DRUGS (3)
  1. AXITINIB [Suspect]
     Active Substance: AXITINIB
     Indication: RENAL CANCER METASTATIC
  2. PREDNISONE. [Concomitant]
     Active Substance: PREDNISONE
  3. KEYTRUDA [Suspect]
     Active Substance: PEMBROLIZUMAB
     Indication: RENAL CANCER METASTATIC

REACTIONS (3)
  - Diarrhoea [Unknown]
  - Blood pressure increased [Unknown]
  - Hypertransaminasaemia [Recovering/Resolving]
